FAERS Safety Report 15756297 (Version 5)
Quarter: 2020Q2

REPORT INFORMATION
  Report Type: Spontaneous
  Country: US (occurrence: US)
  Receive Date: 20181224
  Receipt Date: 20200508
  Transmission Date: 20200713
  Serious: Yes (Death, Other)
  Sender: FDA-Public Use
  Company Number: US-SHIRE-US201849421

PATIENT
  Age: 70 Year
  Sex: Female

DRUGS (2)
  1. CARBATROL [Suspect]
     Active Substance: CARBAMAZEPINE
     Indication: EPILEPSY
  2. CARBATROL [Suspect]
     Active Substance: CARBAMAZEPINE
     Indication: SEIZURE
     Dosage: UNK
     Route: 065
     Dates: start: 20181212

REACTIONS (4)
  - Gastrooesophageal reflux disease [Unknown]
  - Dyspepsia [Unknown]
  - Death [Fatal]
  - Product substitution issue [Unknown]

NARRATIVE: CASE EVENT DATE: 20190102
